FAERS Safety Report 4472486-8 (Version None)
Quarter: 2004Q4

REPORT INFORMATION
  Report Type: 
  Country: None (occurrence: None)
  Receive Date: 20041007
  Receipt Date: 20041001
  Transmission Date: 20050328
  Serious: Yes (Other)
  Sender: FDA-Public Use
  Company Number: 2004-10-0069

PATIENT
  Sex: Female

DRUGS (1)
  1. TEMODAR [Suspect]
     Dosage: 115 MG QD ORAL
     Route: 048

REACTIONS (4)
  - APALLIC SYNDROME [None]
  - FULL BLOOD COUNT DECREASED [None]
  - RASH MACULAR [None]
  - THERMAL BURN [None]
